FAERS Safety Report 5012098-0 (Version None)
Quarter: 2006Q2

REPORT INFORMATION
  Report Type: 
  Country: None (occurrence: None)
  Receive Date: 20060524
  Receipt Date: 20060516
  Transmission Date: 20061013
  Serious: Yes (Hospitalization)
  Sender: FDA-Public Use
  Company Number: 2006064390

PATIENT
  Age: 52 Year
  Sex: Female

DRUGS (5)
  1. LIPITOR [Suspect]
     Indication: ILL-DEFINED DISORDER
     Dosage: 3 IN 1 D
     Dates: end: 20041201
  2. NEURONTIN [Concomitant]
  3. METFORMIN [Concomitant]
  4. AVANDIA [Concomitant]
  5. INSULIN [Concomitant]

REACTIONS (2)
  - DRUG EFFECT DECREASED [None]
  - VERTIGO [None]
